FAERS Safety Report 7018126-5 (Version None)
Quarter: 2010Q3

REPORT INFORMATION
  Report Type: 
  Country: None (occurrence: None)
  Receive Date: 20100928
  Receipt Date: 20100913
  Transmission Date: 20110219
  Serious: Yes (Hospitalization)
  Sender: FDA-Public Use
  Company Number: FR-JNJFOC-20100907245

PATIENT
  Sex: Female

DRUGS (8)
  1. IXPRIM [Suspect]
     Indication: PAIN
     Route: 048
  2. ALISKIREN [Suspect]
     Indication: HYPERTENSION
     Route: 048
  3. METFORMIN [Concomitant]
     Route: 065
  4. GLIMEPIRIDE [Concomitant]
     Route: 065
  5. PRAVASTATIN SODIUM [Concomitant]
     Route: 065
  6. PREDNISONE [Concomitant]
     Route: 065
  7. DILTIAZEM [Concomitant]
     Route: 065
  8. HEXAQUINE [Concomitant]
     Route: 065

REACTIONS (6)
  - ANXIETY [None]
  - CHEST DISCOMFORT [None]
  - GAIT DISTURBANCE [None]
  - HYPOKALAEMIA [None]
  - HYPONATRAEMIA [None]
  - SPEECH DISORDER [None]
